FAERS Safety Report 10866315 (Version 1)
Quarter: 2015Q1

REPORT INFORMATION
  Report Type: Spontaneous
  Country: FR (occurrence: FR)
  Receive Date: 20150225
  Receipt Date: 20150225
  Transmission Date: 20150721
  Serious: Yes (Other)
  Sender: FDA-Public Use
  Company Number: FR-CIPLA LTD.-2015FR01300

PATIENT

DRUGS (2)
  1. PANCREATIN [Concomitant]
     Active Substance: PANCRELIPASE
     Indication: ADENOCARCINOMA PANCREAS
     Dosage: 75,000 IU PER DAY
  2. GEMCITABINE [Suspect]
     Active Substance: GEMCITABINE\GEMCITABINE HYDROCHLORIDE
     Indication: ADENOCARCINOMA PANCREAS
     Dosage: 1000MG/M2/WEEK

REACTIONS (1)
  - Myopathy [Recovered/Resolved]
